FAERS Safety Report 10186441 (Version 1)
Quarter: 2014Q2

REPORT INFORMATION
  Report Type: Spontaneous
  Country: US (occurrence: US)
  Receive Date: 20140521
  Receipt Date: 20140521
  Transmission Date: 20141212
  Serious: No
  Sender: FDA-Public Use
  Company Number: US-ASTRAZENECA-2013SE63184

PATIENT
  Age: 52 Year
  Sex: Female
  Weight: 83.5 kg

DRUGS (9)
  1. PULMICORT RESPULES [Suspect]
     Indication: ASTHMA
     Dosage: 0.25 MG 1 PUFF TWO TIMES A DAY
     Route: 055
     Dates: start: 1992
  2. SYMBICORT  PMDI [Suspect]
     Indication: CHRONIC OBSTRUCTIVE PULMONARY DISEASE
     Dosage: 1 PUFF TWO TIMES A DAY
     Route: 055
     Dates: start: 2010
  3. PRILOSEC [Suspect]
     Indication: GASTROOESOPHAGEAL REFLUX DISEASE
     Route: 048
     Dates: start: 2011
  4. SPIRIVA [Concomitant]
     Indication: CHRONIC OBSTRUCTIVE PULMONARY DISEASE
     Dosage: DAILY
     Route: 055
     Dates: start: 2012
  5. PREDNISONE [Concomitant]
     Indication: DYSPNOEA
     Route: 048
     Dates: start: 2009
  6. LASIX [Concomitant]
     Indication: SWELLING
  7. VENTALIN INHALER PRN [Concomitant]
     Indication: ASTHMA
  8. HYDROCODONE ACETAMPINOPHEN [Concomitant]
     Indication: PAIN
  9. HYDROCODONE [Concomitant]
     Indication: PAIN

REACTIONS (7)
  - Gastrooesophageal reflux disease [Unknown]
  - Oxygen consumption [Unknown]
  - Oxygen saturation decreased [Unknown]
  - Psychomotor hyperactivity [Unknown]
  - Sleep disorder [Unknown]
  - Restlessness [Unknown]
  - Off label use [Unknown]
